FAERS Safety Report 20348199 (Version 1)
Quarter: 2022Q1

REPORT INFORMATION
  Report Type: Report from Study
  Country: US (occurrence: US)
  Receive Date: 20220119
  Receipt Date: 20220119
  Transmission Date: 20220423
  Serious: Yes (Hospitalization)
  Sender: FDA-Public Use
  Company Number: US-JNJFOC-20220124065

PATIENT
  Age: 23 Year
  Sex: Male
  Weight: 57.2 kg

DRUGS (2)
  1. INFLIXIMAB [Suspect]
     Active Substance: INFLIXIMAB
     Indication: Inflammatory bowel disease
     Route: 042
     Dates: start: 20090714, end: 20210413
  2. SIMPONI [Concomitant]
     Active Substance: GOLIMUMAB
     Indication: Product used for unknown indication
     Dates: start: 20180528

REACTIONS (1)
  - Folliculitis [Recovered/Resolved]

NARRATIVE: CASE EVENT DATE: 20210910
